FAERS Safety Report 5014900-5 (Version None)
Quarter: 2006Q2

REPORT INFORMATION
  Report Type: 
  Country: None (occurrence: None)
  Receive Date: 20060414
  Receipt Date: 20060112
  Transmission Date: 20061013
  Serious: No
  Sender: FDA-Public Use
  Company Number: 2005SP003131

PATIENT
  Age: 56 Year
  Sex: Female
  Weight: 70.3075 kg

DRUGS (5)
  1. LUNESTA [Suspect]
     Indication: INSOMNIA
     Dosage: 3 MG;HS;ORAL
     Route: 048
     Dates: start: 20050701, end: 20050101
  2. SYNTHROID [Concomitant]
  3. WARFARIN SODIUM [Concomitant]
  4. FOLIC ACID [Concomitant]
  5. AMBIEN [Concomitant]

REACTIONS (4)
  - DYSGEUSIA [None]
  - HEART RATE INCREASED [None]
  - SWOLLEN TONGUE [None]
  - URTICARIA [None]
